FAERS Safety Report 6290917-8 (Version None)
Quarter: 2009Q3

REPORT INFORMATION
  Report Type: 
  Country: None (occurrence: None)
  Receive Date: 20090730
  Receipt Date: 20090720
  Transmission Date: 20100115
  Serious: Yes (Hospitalization, Other)
  Sender: FDA-Public Use
  Company Number: US-ABBOTT-08P-163-0485383-00

PATIENT
  Sex: Female
  Weight: 108.96 kg

DRUGS (22)
  1. HUMIRA [Suspect]
     Indication: PSORIATIC ARTHROPATHY
     Dosage: ON AN OFF
     Route: 058
     Dates: start: 20080801, end: 20080901
  2. HUMIRA [Suspect]
     Route: 058
  3. HYDROCORTISONE [Concomitant]
     Indication: PSORIATIC ARTHROPATHY
     Dosage: 20 MG DAILY; DECREASING DOSE
     Route: 048
  4. LORAZEPAM [Concomitant]
     Indication: ANXIETY
     Dosage: 3 IN 1 DAY, AS NEEDED
     Route: 048
  5. METHOTREXATE [Concomitant]
     Indication: PSORIATIC ARTHROPATHY
     Dosage: ONCE WEEKLY, ON MONDAYS
     Route: 048
  6. PROTONIX [Concomitant]
     Indication: BARRETT'S OESOPHAGUS
     Route: 048
  7. VITAMIN TAB [Concomitant]
     Indication: DRUG USE FOR UNKNOWN INDICATION
     Route: 048
  8. CALTRATE [Concomitant]
     Indication: DRUG USE FOR UNKNOWN INDICATION
     Route: 048
  9. LISINOPRIL HYDROCHLORTHIAZID [Concomitant]
     Indication: HYPERTENSION
     Dosage: 20/12.5 MG, ONE DAILY
     Route: 048
  10. NAPROXEN [Concomitant]
     Indication: PSORIATIC ARTHROPATHY
     Route: 048
  11. METOPROLOL TARTRATE [Concomitant]
     Indication: DRUG USE FOR UNKNOWN INDICATION
     Dosage: 1/2 OF 25 MG TAB, TWICE DAILY
  12. METOPROLOL TARTRATE [Concomitant]
  13. LYRICA [Concomitant]
     Indication: SCIATICA
     Dosage: TWICE DAILY, WEANING MEDICATION
  14. FOLIC ACID [Concomitant]
     Indication: PSORIATIC ARTHROPATHY
     Route: 048
  15. CYMBALTA [Concomitant]
     Indication: DEPRESSION
  16. FERRO-SEQUELS [Concomitant]
     Indication: MINERAL SUPPLEMENTATION
  17. FERRO-SEQUELS [Concomitant]
     Indication: IRON DEFICIENCY
  18. DIAZEPAM [Concomitant]
     Indication: DEPRESSION
  19. CLONAZEPAM [Concomitant]
     Indication: DEPRESSION
     Dosage: 2 DAILY AS NEEDED
  20. ALPRAZOLAM [Concomitant]
     Indication: PSYCHIATRIC SYMPTOM
     Dosage: 1-2 TABLETS AS NEEDED
  21. PANTOPRAZOLE SODIUM [Concomitant]
     Indication: OESOPHAGEAL DISORDER
  22. SUCRALFATE [Concomitant]
     Indication: GASTRIC DISORDER
     Dosage: UP TO 4 TIMES A DAY

REACTIONS (13)
  - ADRENAL INSUFFICIENCY [None]
  - BLOOD IRON DECREASED [None]
  - BLOOD POTASSIUM DECREASED [None]
  - BLOOD SODIUM DECREASED [None]
  - CYSTITIS [None]
  - EAR NEOPLASM [None]
  - HEADACHE [None]
  - HEART RATE INCREASED [None]
  - HEART RATE IRREGULAR [None]
  - INAPPROPRIATE SCHEDULE OF DRUG ADMINISTRATION [None]
  - SALIVARY GLAND NEOPLASM [None]
  - STRESS [None]
  - VOMITING [None]
